FAERS Safety Report 7113977-0 (Version None)
Quarter: 2010Q4

REPORT INFORMATION
  Report Type: 
  Country: None (occurrence: None)
  Receive Date: 20101119
  Receipt Date: 20101117
  Transmission Date: 20110411
  Serious: Yes (Other)
  Sender: FDA-Public Use
  Company Number: A0893014A

PATIENT
  Age: 89 Year
  Sex: Female

DRUGS (4)
  1. ADVAIR DISKUS 100/50 [Suspect]
     Dosage: 1PUFF SINGLE DOSE
     Route: 055
     Dates: start: 20101110, end: 20101110
  2. CRESTOR [Concomitant]
  3. SYNTHROID [Concomitant]
  4. TOPROL-XL [Concomitant]

REACTIONS (2)
  - EYE SWELLING [None]
  - VISUAL ACUITY REDUCED [None]
